FAERS Safety Report 5736076-9 (Version None)
Quarter: 2008Q2

REPORT INFORMATION
  Report Type: 
  Country: None (occurrence: None)
  Receive Date: 20080513
  Receipt Date: 20080502
  Transmission Date: 20081010
  Serious: Yes (Other)
  Sender: FDA-Public Use
  Company Number: IE-ROCHE-562486

PATIENT
  Age: 47 Year
  Sex: Female

DRUGS (6)
  1. KYTRIL [Suspect]
     Indication: PREMEDICATION
     Route: 042
     Dates: start: 20071203, end: 20071203
  2. TAXOL [Suspect]
     Indication: BREAST CANCER
     Dosage: DOSAGE REPORTED FOR ONE TIME.
     Route: 042
     Dates: start: 20071203, end: 20071203
  3. CHLORPHENIRAMINE MALEATE [Suspect]
     Indication: PREMEDICATION
     Route: 042
     Dates: start: 20071203, end: 20071203
  4. TAXOTERE [Suspect]
     Indication: DRUG USE FOR UNKNOWN INDICATION
     Route: 065
  5. ZANTAC [Concomitant]
  6. DEXAMETHASONE [Concomitant]

REACTIONS (3)
  - ANAPHYLACTIC REACTION [None]
  - CHEST DISCOMFORT [None]
  - FLUSHING [None]
